FAERS Safety Report 20695880 (Version 3)
Quarter: 2022Q2

REPORT INFORMATION
  Report Type: Report from Study
  Country: US (occurrence: US)
  Receive Date: 20220411
  Receipt Date: 20220512
  Transmission Date: 20220721
  Serious: Yes (Hospitalization, Other)
  Sender: FDA-Public Use
  Company Number: US-NOVARTISPH-NVSC2022US080481

PATIENT
  Sex: Female

DRUGS (1)
  1. ENTRESTO [Suspect]
     Active Substance: SACUBITRIL\VALSARTAN
     Indication: Cardiac failure congestive
     Dosage: 1 DOSAGE FORM, BID (24/26MG)
     Route: 048
     Dates: start: 20220303

REACTIONS (5)
  - Atrial fibrillation [Not Recovered/Not Resolved]
  - Diabetes mellitus [Unknown]
  - Blood glucose decreased [Recovering/Resolving]
  - Feeling abnormal [Unknown]
  - Anxiety [Recovering/Resolving]
